FAERS Safety Report 5029446-8 (Version None)
Quarter: 2006Q2

REPORT INFORMATION
  Report Type: 
  Country: None (occurrence: None)
  Receive Date: 20060613
  Receipt Date: 20060518
  Transmission Date: 20061013
  Serious: Yes (Hospitalization)
  Sender: FDA-Public Use
  Company Number: 700209

PATIENT
  Age: 47 Year
  Sex: Male
  Weight: 76 kg

DRUGS (14)
  1. EXTRANEAL [Suspect]
     Indication: PERITONEAL DIALYSIS
     Dosage: EVERY DAY; IP
     Route: 033
     Dates: start: 20021001, end: 20030202
  2. EXTRANEAL [Suspect]
     Indication: PERITONEAL DIALYSIS
     Dosage: EVERY DAY; IP
     Route: 033
     Dates: start: 20030224, end: 20030224
  3. EXTRANEAL [Suspect]
  4. NUTRINEAL PD2 [Concomitant]
  5. TARDYFERON-FOL [Concomitant]
  6. BICARBONATE [Concomitant]
  7. COZAAR [Concomitant]
  8. LASILIX [Concomitant]
  9. DEDROGYL [Concomitant]
  10. TAHOR [Concomitant]
  11. EXACIN [Concomitant]
  12. VINITECK [Concomitant]
  13. CALCIFORTE [Concomitant]
  14. RECORMON [Concomitant]

REACTIONS (5)
  - BURNING SENSATION [None]
  - HYPERHIDROSIS [None]
  - INFUSION SITE PAIN [None]
  - PERITONITIS [None]
  - PROCEDURAL COMPLICATION [None]
